FAERS Safety Report 6388289-3 (Version None)
Quarter: 2009Q4

REPORT INFORMATION
  Report Type: 
  Country: None (occurrence: None)
  Receive Date: 20091001
  Receipt Date: 20091001
  Transmission Date: 20100525
  Serious: Yes (Hospitalization)
  Sender: FDA-Public Use
  Company Number: None

PATIENT
  Age: 47 Year
  Sex: Male

DRUGS (2)
  1. CLOPIDOGREL [Suspect]
     Dosage: 75 MG EVERY DAY PO
     Route: 048
     Dates: start: 20090311, end: 20090808
  2. ASPIRIN [Suspect]
     Dosage: 975 MG TID PO
     Route: 048
     Dates: start: 20090721, end: 20090808

REACTIONS (2)
  - MUSCULOSKELETAL PAIN [None]
  - UPPER GASTROINTESTINAL HAEMORRHAGE [None]
